APPROVED DRUG PRODUCT: HYDROMORPHONE HYDROCHLORIDE
Active Ingredient: HYDROMORPHONE HYDROCHLORIDE
Strength: 0.25MG/0.5ML
Dosage Form/Route: INJECTABLE;INJECTION
Application: N200403 | Product #005
Applicant: HOSPIRA INC
Approved: Mar 3, 2023 | RLD: No | RS: No | Type: RX